FAERS Safety Report 4874983-X (Version None)
Quarter: 2006Q1

REPORT INFORMATION
  Report Type: 
  Country: None (occurrence: None)
  Receive Date: 20060109
  Receipt Date: 20051228
  Transmission Date: 20060701
  Serious: Yes (Hospitalization)
  Sender: FDA-Public Use
  Company Number: PHHO2005RU20147

PATIENT
  Age: 76 Year
  Sex: Female
  Weight: 98 kg

DRUGS (6)
  1. NATEGLINIDE [Suspect]
     Indication: GLUCOSE TOLERANCE IMPAIRED
     Dosage: LEVEL 1
     Route: 048
     Dates: start: 20030624
  2. VALSARTAN [Suspect]
     Indication: CARDIOVASCULAR DISORDER
     Dosage: LEVEL 1
     Route: 048
     Dates: start: 20030624
  3. CARDIKET [Concomitant]
  4. VERAPAMIL [Concomitant]
  5. HYPOTHIAZID [Concomitant]
  6. MONO MACK [Concomitant]

REACTIONS (8)
  - ANGINA PECTORIS [None]
  - BRONCHITIS CHRONIC [None]
  - CHOLECYSTITIS CHRONIC [None]
  - CORONARY ARTERY DISEASE [None]
  - DISEASE PROGRESSION [None]
  - DIZZINESS [None]
  - DYSPNOEA [None]
  - HYPERTENSION [None]
